FAERS Safety Report 8141288-3 (Version None)
Quarter: 2012Q1

REPORT INFORMATION
  Report Type: 
  Country: None (occurrence: None)
  Receive Date: 20120103
  Receipt Date: 20110919
  Transmission Date: 20120608
  Serious: No
  Sender: FDA-Public Use
  Company Number: AE-2011-001664

PATIENT
  Age: 59 Year
  Sex: Male
  Weight: 92.0802 kg

DRUGS (14)
  1. PEGASYS [Concomitant]
  2. VITAMIN B INJECTION (VITAMIN B) [Concomitant]
  3. TRAZODONE HCL [Concomitant]
  4. INCIVEK [Suspect]
     Dosage: 2250 MG (750 MG, 3 IN 1 D), ORAL
     Route: 048
     Dates: start: 20110910
  5. COPEGUS [Concomitant]
  6. CALCIUM CARBONATE [Concomitant]
  7. VITAMIN B COMPLEX(B-KOMPLEX ^LECIVA^) [Concomitant]
  8. ELSOLOL-HCTZ [Concomitant]
  9. FOLIC ACID [Concomitant]
  10. GLUCOSAMINE(GLUCOSAMINE) [Concomitant]
  11. HYDROXOCOBALAMIN [Concomitant]
  12. FISH OIL(FISH OIL [Concomitant]
  13. AMLODIPINE [Concomitant]
  14. LORAZEPAM [Concomitant]

REACTIONS (2)
  - PARAESTHESIA [None]
  - HAEMORRHOIDS [None]
